FAERS Safety Report 8506254-4 (Version None)
Quarter: 2012Q3

REPORT INFORMATION
  Report Type: 
  Country: None (occurrence: None)
  Receive Date: 20120702
  Receipt Date: 20120619
  Transmission Date: 20120928
  Serious: Yes (Other)
  Sender: FDA-Public Use
  Company Number: DSA_58150_2012

PATIENT

DRUGS (3)
  1. FLUOROURACIL [Suspect]
     Indication: COLORECTAL CANCER
     Dosage: (400MG/M2 INTRAVENOUS BOLUS) (600 MG/M2 INTRAVENOUS (NOT OTHERWISE SPECIFIED))
     Route: 040
  2. LEUCOVORIN CALCIUM [Suspect]
     Indication: COLORECTAL CANCER
     Dosage: (200MG/M2 INTRAVENOUS (NOT OTHERWISE SPECIFIED))
     Route: 042
  3. OXALIPLATIN [Suspect]
     Indication: COLORECTAL CANCER
     Dosage: (85 MG/M2; EVERY OTHER WEEK INTRAVENOUS (NOT OTHERWISE SPECIFIED))
     Route: 042

REACTIONS (1)
  - HYPERGLYCAEMIA [None]
